FAERS Safety Report 8935805 (Version 2)
Quarter: 2013Q1

REPORT INFORMATION
  Report Type: Spontaneous
  Country: JP (occurrence: JP)
  Receive Date: 20121130
  Receipt Date: 20130319
  Transmission Date: 20140127
  Serious: Yes (Other)
  Sender: FDA-Public Use
  Company Number: JP-BRISTOL-MYERS SQUIBB COMPANY-17157371

PATIENT
  Age: 1 Day
  Sex: Female
  Weight: 3.01 kg

DRUGS (7)
  1. ABILIFY TABS [Suspect]
     Dosage: ABILIFY TABS 6 MG
     Route: 064
     Dates: end: 20121113
  2. FERRUM [Concomitant]
     Dosage: CAPS
     Route: 064
     Dates: start: 20121031, end: 20121112
  3. SELBEX [Concomitant]
     Dosage: CAPS
     Route: 064
     Dates: start: 20121107, end: 20121113
  4. GLUCOSE + ELECTROLYTES [Concomitant]
     Route: 064
     Dates: start: 20120615, end: 20120615
  5. AMINO ACIDS [Concomitant]
     Route: 064
     Dates: start: 20120615, end: 20120615
  6. THIAMINE HCL [Concomitant]
     Route: 064
     Dates: start: 20120615, end: 20120615
  7. RITODRINE HCL [Concomitant]
     Route: 064
     Dates: start: 20120819, end: 20120821

REACTIONS (2)
  - Dyspnoea [Unknown]
  - Jaundice neonatal [Unknown]
